FAERS Safety Report 13167315 (Version 1)
Quarter: 2017Q1

REPORT INFORMATION
  Report Type: Spontaneous
  Country: US (occurrence: US)
  Receive Date: 20170131
  Receipt Date: 20170131
  Transmission Date: 20170428
  Serious: Yes (Other)
  Sender: FDA-Public Use
  Company Number: None

PATIENT
  Age: 55 Year
  Sex: Male
  Weight: 99.79 kg

DRUGS (9)
  1. GABAPENTIN. [Concomitant]
     Active Substance: GABAPENTIN
  2. CYCLOBENZAPRINE [Concomitant]
     Active Substance: CYCLOBENZAPRINE
  3. TIZANIDINE. [Suspect]
     Active Substance: TIZANIDINE
     Indication: MUSCLE SPASMS
     Route: 048
     Dates: start: 20160912, end: 20160921
  4. TEMAZEPAM. [Concomitant]
     Active Substance: TEMAZEPAM
  5. TIZANIDINE. [Suspect]
     Active Substance: TIZANIDINE
     Indication: MYALGIA
     Route: 048
     Dates: start: 20160912, end: 20160921
  6. COLONAPINE [Concomitant]
  7. CLONAZEPAM. [Concomitant]
     Active Substance: CLONAZEPAM
  8. QUETIAPINE. [Concomitant]
     Active Substance: QUETIAPINE
  9. HYDROCODONE [Concomitant]
     Active Substance: HYDROCODONE

REACTIONS (9)
  - Hyperhidrosis [None]
  - Proctalgia [None]
  - Hallucination [None]
  - Dyspnoea [None]
  - Dyspepsia [None]
  - Constipation [None]
  - Dry mouth [None]
  - Somnolence [None]
  - Glossodynia [None]

NARRATIVE: CASE EVENT DATE: 20160912
